FAERS Safety Report 15302382 (Version 1)
Quarter: 2018Q3

REPORT INFORMATION
  Report Type: Spontaneous
  Country: FR (occurrence: FR)
  Receive Date: 20180821
  Receipt Date: 20180821
  Transmission Date: 20181010
  Serious: Yes (Hospitalization, Other)
  Sender: FDA-Public Use
  Company Number: FR-ABBVIE-18K-056-2411002-00

PATIENT
  Age: 76 Year
  Sex: Male
  Weight: 85 kg

DRUGS (2)
  1. HUMIRA [Suspect]
     Active Substance: ADALIMUMAB
     Indication: RHEUMATOID ARTHRITIS
     Route: 058
     Dates: start: 20180618, end: 20180618
  2. CORTANCYL [Concomitant]
     Active Substance: PREDNISONE
     Indication: RHEUMATOID ARTHRITIS
     Route: 048
     Dates: start: 2010

REACTIONS (9)
  - C-reactive protein increased [Unknown]
  - Neutrophil count decreased [Unknown]
  - Rash pruritic [Recovering/Resolving]
  - Toxic skin eruption [Unknown]
  - Rash morbilliform [Recovering/Resolving]
  - Dermo-hypodermitis [Unknown]
  - Red blood cell sedimentation rate increased [Unknown]
  - Rash maculo-papular [Recovering/Resolving]
  - Urticaria [Recovering/Resolving]

NARRATIVE: CASE EVENT DATE: 20180702
